FAERS Safety Report 10820139 (Version 1)
Quarter: 2015Q1

REPORT INFORMATION
  Report Type: Report from Study
  Country: US (occurrence: US)
  Receive Date: 20150218
  Receipt Date: 20150218
  Transmission Date: 20150721
  Serious: No
  Sender: FDA-Public Use
  Company Number: US-ABBVIE-14K-163-1291984-00

PATIENT
  Age: 52 Year
  Sex: Male

DRUGS (3)
  1. HUMIRA [Suspect]
     Active Substance: ADALIMUMAB
     Dosage: LOADING DOSE
     Route: 065
     Dates: start: 20140924, end: 20140924
  2. HUMIRA [Suspect]
     Active Substance: ADALIMUMAB
     Indication: CROHN^S DISEASE
     Dosage: LOADING DOSE
     Route: 065
     Dates: start: 20140910, end: 20140910
  3. HUMIRA [Suspect]
     Active Substance: ADALIMUMAB
     Route: 065

REACTIONS (8)
  - Musculoskeletal stiffness [Unknown]
  - Mobility decreased [Unknown]
  - Insomnia [Unknown]
  - Pain in extremity [Unknown]
  - Asthenia [Not Recovered/Not Resolved]
  - Hypoaesthesia [Unknown]
  - Arthralgia [Unknown]
  - Headache [Unknown]

NARRATIVE: CASE EVENT DATE: 201409
